FAERS Safety Report 10022220 (Version 1)
Quarter: 2013Q4

REPORT INFORMATION
  Report Type: Spontaneous
  Country: GB (occurrence: None)
  Receive Date: 20131216
  Receipt Date: 20131216
  Transmission Date: 20140711
  Serious: Yes (Death, Hospitalization)
  Sender: FDA-Public Use
  Company Number: GB2013K5072SPO

PATIENT
  Age: 87 Year
  Sex: Male
  Weight: 68 kg

DRUGS (8)
  1. LANSOPRAZOLE [Suspect]
     Indication: PRODUCT USED FOR UNKNOWN INDICATION
  2. CLARITHROMYCIN [Suspect]
     Indication: STAPHYLOCOCCAL INFECTION
     Dosage: 500 MG, 2X PER DAY, ORAL
     Route: 048
     Dates: start: 20121101, end: 20130211
  3. CLARITHROMYCIN [Suspect]
     Dosage: 500 MG, 2X PER DAY, ORAL
     Route: 048
     Dates: start: 20121101, end: 20130211
  4. SIMVASTATIN WORLD [Suspect]
     Indication: HYPERCHOLESTEROLAEMIA
     Dosage: 40 MG, 1X PER DAY, ORAL
     Route: 048
     Dates: start: 2012
  5. FUSIDIC ACID [Suspect]
     Indication: STAPHYLOCOCCAL INFECTION
     Dosage: 500 MG, 3X PER DAY; ORAL
     Route: 048
     Dates: start: 20121220, end: 20130211
  6. FUSIDIC ACID [Suspect]
     Dosage: 500 MG, 3X PER DAY; ORAL
     Route: 048
     Dates: start: 20121220, end: 20130211
  7. ACETYLSALICYLIC ACID (ASPIRIN) [Concomitant]
  8. INSULIN GLARGIN (INSULIN GLARGINE) [Concomitant]

REACTIONS (5)
  - Drug interaction [None]
  - Renal failure acute [None]
  - Incorrect drug administration duration [None]
  - Rhabdomyolysis [None]
  - Sepsis [None]
